FAERS Safety Report 21163140 (Version 4)
Quarter: 2022Q4

REPORT INFORMATION
  Report Type: Report from Study
  Country: US (occurrence: US)
  Receive Date: 20220802
  Receipt Date: 20221004
  Transmission Date: 20230113
  Serious: Yes (Hospitalization, Disabling, Other)
  Sender: FDA-Public Use
  Company Number: US-Taiho Oncology Inc-EU-2022-01658

PATIENT
  Sex: Male
  Weight: 90.72 kg

DRUGS (6)
  1. LONSURF [Suspect]
     Active Substance: TIPIRACIL HYDROCHLORIDE\TRIFLURIDINE
     Indication: Colon cancer
     Dosage: CYCLE UNKNOWN
     Route: 048
     Dates: start: 20211025
  2. LONSURF [Suspect]
     Active Substance: TIPIRACIL HYDROCHLORIDE\TRIFLURIDINE
     Indication: Colorectal cancer
  3. STIVARGA [Suspect]
     Active Substance: REGORAFENIB
     Indication: Product used for unknown indication
     Route: 065
  4. XELODA [Concomitant]
     Active Substance: CAPECITABINE
     Indication: Product used for unknown indication
  5. MINERALS\VITAMINS [Concomitant]
     Active Substance: MINERALS\VITAMINS
     Indication: Product used for unknown indication
  6. LACTOSE [Concomitant]
     Active Substance: LACTOSE
     Indication: Product used for unknown indication

REACTIONS (5)
  - Gait inability [Unknown]
  - Haematotoxicity [Unknown]
  - Cytopenia [Unknown]
  - Pain [Unknown]
  - Drug ineffective [Unknown]
